FAERS Safety Report 19459497 (Version 1)
Quarter: 2021Q2

REPORT INFORMATION
  Report Type: Spontaneous
  Country: US (occurrence: US)
  Receive Date: 20210624
  Receipt Date: 20210624
  Transmission Date: 20210717
  Serious: Yes (Life-Threatening, Hospitalization)
  Sender: FDA-Public Use
  Company Number: US-TEVA-2021-US-1924643

PATIENT
  Age: 19 Year
  Sex: Female
  Weight: 67 kg

DRUGS (10)
  1. FENTANYL. [Concomitant]
     Active Substance: FENTANYL
     Indication: SEDATION
     Dosage: 3600 MICROGRAM DAILY;
     Route: 041
  2. POLYETHYLENE GLYCOL [Concomitant]
     Active Substance: POLYETHYLENE GLYCOLS
     Indication: PRODUCT USED FOR UNKNOWN INDICATION
     Dosage: DOSE: 1 L/H FOR 4 H
     Route: 050
  3. MAGNESIUM SULFATE. [Concomitant]
     Active Substance: MAGNESIUM SULFATE
     Indication: PRODUCT USED FOR UNKNOWN INDICATION
     Route: 042
  4. BUPROPION. [Suspect]
     Active Substance: BUPROPION
     Indication: SUICIDE ATTEMPT
     Dosage: SUSTAINED?RELEASE TABLETS
     Route: 048
  5. PROPOFOL. [Concomitant]
     Active Substance: PROPOFOL
     Indication: SEDATION
     Dosage: 28800 UG/KG DAILY;
     Route: 050
  6. LORAZEPAM. [Concomitant]
     Active Substance: LORAZEPAM
     Indication: AGITATION
     Route: 042
  7. LORAZEPAM. [Concomitant]
     Active Substance: LORAZEPAM
     Indication: SEDATION
     Dosage: 384 MILLIGRAM DAILY;
     Route: 040
  8. ETOMIDATE. [Concomitant]
     Active Substance: ETOMIDATE
     Indication: ENDOTRACHEAL INTUBATION
     Route: 042
  9. SUCCINYLCHOLINE [Concomitant]
     Active Substance: SUCCINYLCHOLINE
     Indication: ENDOTRACHEAL INTUBATION
     Route: 042
  10. SODIUM BICARBONATE. [Concomitant]
     Active Substance: SODIUM BICARBONATE
     Indication: PRODUCT USED FOR UNKNOWN INDICATION
     Route: 040

REACTIONS (8)
  - Generalised tonic-clonic seizure [Recovered/Resolved]
  - Suicide attempt [Recovering/Resolving]
  - Supraventricular tachycardia [Recovering/Resolving]
  - Serotonin syndrome [Recovering/Resolving]
  - Nervous system disorder [Recovering/Resolving]
  - Sinus tachycardia [Recovering/Resolving]
  - Hallucination, visual [Recovering/Resolving]
  - Intentional overdose [Unknown]
